FAERS Safety Report 21416957 (Version 1)
Quarter: 2022Q4

REPORT INFORMATION
  Report Type: Spontaneous
  Country: FR (occurrence: FR)
  Receive Date: 20221006
  Receipt Date: 20221006
  Transmission Date: 20230112
  Serious: Yes (Hospitalization)
  Sender: FDA-Public Use
  Company Number: FR-Atnahs Limited-ATNAHS20221009133

PATIENT
  Age: 56 Year
  Sex: Female
  Weight: 43.5 kg

DRUGS (13)
  1. VALIUM [Suspect]
     Active Substance: DIAZEPAM
     Indication: Anxiety
     Route: 050
     Dates: start: 20220730
  2. VALPROATE SODIUM [Suspect]
     Active Substance: VALPROATE SODIUM
     Indication: Bipolar disorder
     Route: 050
     Dates: start: 20220818, end: 20220826
  3. VALPROATE SODIUM [Suspect]
     Active Substance: VALPROATE SODIUM
     Route: 050
     Dates: start: 20220728, end: 20220801
  4. VALPROATE SODIUM [Suspect]
     Active Substance: VALPROATE SODIUM
     Route: 050
     Dates: start: 20220827, end: 20220915
  5. VALPROATE SODIUM [Suspect]
     Active Substance: VALPROATE SODIUM
     Route: 050
     Dates: start: 20220810, end: 20220817
  6. VALPROATE SODIUM [Suspect]
     Active Substance: VALPROATE SODIUM
     Route: 050
     Dates: start: 20220802, end: 20220809
  7. NEO-MERCAZOLE [Suspect]
     Active Substance: CARBIMAZOLE
     Indication: Hyperthyroidism
     Route: 050
     Dates: start: 202203, end: 20220915
  8. PRAVASTATIN SODIUM [Suspect]
     Active Substance: PRAVASTATIN SODIUM
     Indication: Dyslipidaemia
     Route: 050
     Dates: start: 2022, end: 20220915
  9. TRIMEPRAZINE [Suspect]
     Active Substance: TRIMEPRAZINE
     Indication: Sleep disorder
     Route: 050
     Dates: start: 20220802, end: 20220911
  10. TRIMEPRAZINE [Suspect]
     Active Substance: TRIMEPRAZINE
     Route: 050
     Dates: start: 20220912
  11. LOXAPINE SUCCINATE [Suspect]
     Active Substance: LOXAPINE SUCCINATE
     Indication: Sedation
     Route: 050
     Dates: start: 20220728
  12. CALCIDOSE [Concomitant]
     Indication: Osteoporosis prophylaxis
     Route: 050
     Dates: start: 2022
  13. TROPATEPINE HYDROCHLORIDE [Concomitant]
     Active Substance: TROPATEPINE HYDROCHLORIDE
     Indication: Parkinsonism
     Route: 050
     Dates: start: 20220916

REACTIONS (1)
  - Cholestatic liver injury [Not Recovered/Not Resolved]

NARRATIVE: CASE EVENT DATE: 20220914
